FAERS Safety Report 8817707 (Version 1)
Quarter: 2012Q4

REPORT INFORMATION
  Report Type: 
  Country: US (occurrence: US)
  Receive Date: 20121001
  Receipt Date: 20121001
  Transmission Date: 20130627
  Serious: No
  Sender: FDA-Public Use
  Company Number: US-PFIZER INC-2012241738

PATIENT
  Age: 68 Year
  Sex: Male
  Weight: 107.5 kg

DRUGS (4)
  1. LYRICA [Suspect]
     Indication: ARTHRALGIA
     Dosage: 75 mg, 2x/day
     Route: 048
     Dates: start: 2012, end: 201209
  2. LYRICA [Suspect]
     Indication: MYALGIA
  3. TRAMADOL [Concomitant]
     Dosage: UNK
  4. AMBIEN [Concomitant]
     Indication: SLEEP DISORDER
     Dosage: UNK

REACTIONS (1)
  - Pain [Not Recovered/Not Resolved]
